FAERS Safety Report 15278195 (Version 1)
Quarter: 2018Q3

REPORT INFORMATION
  Report Type: Spontaneous
  Country: US (occurrence: US)
  Receive Date: 20180814
  Receipt Date: 20180814
  Transmission Date: 20181010
  Serious: Yes (Hospitalization)
  Sender: FDA-Public Use
  Company Number: US-ALLERGAN-1839478US

PATIENT
  Sex: Female

DRUGS (2)
  1. BOTOX [Suspect]
     Active Substance: ONABOTULINUMTOXINA
     Indication: MIGRAINE
     Dosage: 155 UNITS, SINGLE
     Route: 030
     Dates: start: 201807, end: 201807
  2. BOTOX [Suspect]
     Active Substance: ONABOTULINUMTOXINA
     Indication: HYPERHIDROSIS
     Dosage: 1500?1800 UNITS, SINGLE
     Route: 030
     Dates: start: 201806, end: 201806

REACTIONS (11)
  - Pupillary reflex impaired [Unknown]
  - Muscular weakness [Unknown]
  - Dry eye [Unknown]
  - Drug effect incomplete [Unknown]
  - Dyspnoea [Unknown]
  - Dry mouth [Unknown]
  - Overdose [Unknown]
  - Botulism [Unknown]
  - Aphasia [Unknown]
  - Dysphagia [Unknown]
  - Asthenia [Unknown]
